FAERS Safety Report 22105107 (Version 1)
Quarter: 2023Q1

REPORT INFORMATION
  Report Type: Spontaneous
  Country: GB (occurrence: GB)
  Receive Date: 20230316
  Receipt Date: 20230316
  Transmission Date: 20230418
  Serious: Yes (Other)
  Sender: FDA-Public Use
  Company Number: ALC2022GB002956

PATIENT

DRUGS (1)
  1. LUTEIN\MINERALS\VITAMINS\ZINC [Suspect]
     Active Substance: LUTEIN\MINERALS\VITAMINS\ZINC
     Indication: Product used for unknown indication
     Dosage: UNK
     Route: 048

REACTIONS (11)
  - Anal injury [Recovering/Resolving]
  - Constipation [Recovered/Resolved]
  - Dyspnoea [Recovered/Resolved]
  - Suffocation feeling [Recovered/Resolved]
  - Haemorrhoids [Not Recovered/Not Resolved]
  - Erythema [Recovering/Resolving]
  - Swelling [Recovering/Resolving]
  - Anal inflammation [Recovering/Resolving]
  - Chest discomfort [Recovering/Resolving]
  - Cardiac discomfort [Recovering/Resolving]
  - Scar [Not Recovered/Not Resolved]
